FAERS Safety Report 6031226-1 (Version None)
Quarter: 2009Q1

REPORT INFORMATION
  Report Type: 
  Country: None (occurrence: None)
  Receive Date: 20090108
  Receipt Date: 20090105
  Transmission Date: 20090719
  Serious: Yes (Other)
  Sender: FDA-Public Use
  Company Number: US-BAYER-200840983NA

PATIENT
  Age: 60 Year
  Sex: Male
  Weight: 125 kg

DRUGS (6)
  1. LEVITRA [Suspect]
     Indication: ERECTILE DYSFUNCTION
     Dosage: UNIT DOSE: 10 MG
     Dates: start: 20081207, end: 20081208
  2. CIALIS [Concomitant]
  3. ATENOLOL [Concomitant]
  4. DIGOXIN [Concomitant]
  5. WARFARIN SODIUM [Concomitant]
  6. LISINOPRIL [Concomitant]

REACTIONS (2)
  - DIPLOPIA [None]
  - FLUSHING [None]
